FAERS Safety Report 15692589 (Version 1)
Quarter: 2018Q4

REPORT INFORMATION
  Report Type: Report from Study
  Country: CN (occurrence: CN)
  Receive Date: 20181206
  Receipt Date: 20181206
  Transmission Date: 20190205
  Serious: Yes (Other)
  Sender: FDA-Public Use
  Company Number: CN-ROCHE-2223093

PATIENT

DRUGS (5)
  1. FLUOROURACIL. [Suspect]
     Active Substance: FLUOROURACIL
     Dosage: IVGTT CONTINUOUSLY FOR 48 HOURS, AT DAY 2
     Route: 042
  2. CALCIUM FOLINATE [Suspect]
     Active Substance: LEUCOVORIN CALCIUM
     Indication: COLON CANCER
     Dosage: IVGTT FOR 2 HOURS, AT DAY 1-2 OF CHEMOTHERAPY
     Route: 042
  3. FLUOROURACIL. [Suspect]
     Active Substance: FLUOROURACIL
     Indication: COLON CANCER
     Dosage: AT DAY 1 OF CHEMOTHERAPY
     Route: 040
  4. OXALIPLATIN. [Suspect]
     Active Substance: OXALIPLATIN
     Indication: COLON CANCER
     Dosage: IVGTT FOR 3 HOURS, AT DAY 1 OF CHEMOTHERAPY
     Route: 042
  5. BEVACIZUMAB. [Suspect]
     Active Substance: BEVACIZUMAB
     Indication: COLON CANCER
     Dosage: IVGTT, DAY 2 OF CHEMOTHERAPY; REPEATEDLY WITHIN 2 WEEKS
     Route: 042

REACTIONS (5)
  - Neurotoxicity [Unknown]
  - Renal impairment [Unknown]
  - Hepatic function abnormal [Unknown]
  - Bone marrow failure [Unknown]
  - Gastrointestinal disorder [Unknown]
